FAERS Safety Report 9913162 (Version 1)
Quarter: 2014Q1

REPORT INFORMATION
  Report Type: Spontaneous
  Country: US (occurrence: None)
  Receive Date: 20140218
  Receipt Date: 20140218
  Transmission Date: 20141002
  Serious: Yes (Other)
  Sender: FDA-Public Use
  Company Number: None

PATIENT
  Sex: Male

DRUGS (2)
  1. DILANTIN [Suspect]
  2. TEGRETOL [Suspect]

REACTIONS (3)
  - Cerebrovascular accident [None]
  - Toxicity to various agents [None]
  - Convulsion [None]
